FAERS Safety Report 5094844-3 (Version None)
Quarter: 2006Q3

REPORT INFORMATION
  Report Type: 
  Country: None (occurrence: None)
  Receive Date: 20060831
  Receipt Date: 20060831
  Transmission Date: 20061208
  Serious: Yes (Life-Threatening, Hospitalization)
  Sender: FDA-Public Use
  Company Number: None

PATIENT
  Age: 64 Year
  Sex: Male

DRUGS (5)
  1. LOTREL [Suspect]
     Indication: HYPERTENSION
     Dosage: PO
     Route: 048
     Dates: start: 20051128, end: 20051222
  2. VERAPAMIL ER [Concomitant]
  3. HYDROXYZINE HCL [Concomitant]
  4. DOXYCYCLINE [Concomitant]
  5. CRESTOR [Concomitant]

REACTIONS (3)
  - ANGIONEUROTIC OEDEMA [None]
  - DISCOMFORT [None]
  - SINUSITIS [None]
